FAERS Safety Report 18624720 (Version 2)
Quarter: 2021Q2

REPORT INFORMATION
  Report Type: Spontaneous
  Country: US (occurrence: US)
  Receive Date: 20201216
  Receipt Date: 20210401
  Transmission Date: 20210717
  Serious: No
  Sender: FDA-Public Use
  Company Number: US-GLAXOSMITHKLINE-US2020242273

PATIENT
  Age: 73 Year
  Sex: Female

DRUGS (3)
  1. NUCALA [Suspect]
     Active Substance: MEPOLIZUMAB
     Indication: PRODUCT USED FOR UNKNOWN INDICATION
     Dosage: UNK
     Dates: start: 20201105
  2. COVID?19 VACCINE NOS. [Suspect]
     Active Substance: COVID-19 VACCINE NOS
     Indication: PRODUCT USED FOR UNKNOWN INDICATION
     Dosage: UNK
  3. EVENITY [Suspect]
     Active Substance: ROMOSOZUMAB-AQQG
     Indication: OSTEOPOROSIS
     Dosage: UNK

REACTIONS (7)
  - Social problem [Unknown]
  - Product dose omission issue [Recovered/Resolved]
  - Symptom recurrence [Unknown]
  - Fatigue [Unknown]
  - Dyspnoea [Unknown]
  - Quarantine [Unknown]
  - Myalgia [Unknown]

NARRATIVE: CASE EVENT DATE: 202012
